FAERS Safety Report 5021016-0 (Version None)
Quarter: 2006Q2

REPORT INFORMATION
  Report Type: 
  Country: None (occurrence: None)
  Receive Date: 20060606
  Receipt Date: 20060606
  Transmission Date: 20061013
  Serious: Yes (Other)
  Sender: FDA-Public Use
  Company Number: None

PATIENT
  Age: 58 Year
  Sex: Female
  Weight: 77.1115 kg

DRUGS (1)
  1. EQUATE ANTIHISTABS 10 MG PHENYLEPHRINE HCL  LNK INTERNATIONAL, INC. [Suspect]
     Indication: MULTIPLE ALLERGIES
     Dosage: 1 TABLET EVERY 4 TO 6 HOURS PO
     Route: 048
     Dates: start: 20060301, end: 20060603

REACTIONS (5)
  - DEPRESSION [None]
  - FATIGUE [None]
  - LETHARGY [None]
  - PHARMACEUTICAL PRODUCT COMPLAINT [None]
  - SUICIDAL IDEATION [None]
